FAERS Safety Report 9579953 (Version 2)
Quarter: 2013Q4

REPORT INFORMATION
  Report Type: Spontaneous
  Country: DE (occurrence: DE)
  Receive Date: 20131002
  Receipt Date: 20131122
  Transmission Date: 20140711
  Serious: Yes (Hospitalization, Disabling, Other)
  Sender: FDA-Public Use
  Company Number: DE-ROCHE-1283073

PATIENT
  Age: 51 Year
  Sex: Female
  Weight: 64 kg

DRUGS (8)
  1. AVASTIN [Suspect]
     Indication: BREAST CANCER
     Route: 065
     Dates: start: 201210, end: 20130122
  2. AVASTIN [Suspect]
     Dosage: LAST DOSE PRIOR TO SAE ON MAY/2013
     Route: 065
     Dates: start: 20130212
  3. DUROGESIC [Concomitant]
     Indication: PAIN
     Route: 065
     Dates: start: 201305
  4. TAXOL [Concomitant]
     Indication: BREAST CANCER
     Route: 065
     Dates: start: 201210, end: 20130102
  5. L-THYROXIN [Concomitant]
     Indication: HYPOTHYROIDISM
     Route: 065
  6. BISOPROLOL [Concomitant]
     Indication: HYPERTENSION
     Route: 065
  7. PANTOZOL (GERMANY) [Concomitant]
     Indication: PROPHYLAXIS AGAINST GASTROINTESTINAL ULCER
     Route: 065
     Dates: start: 201305
  8. BLEOMYCIN [Concomitant]
     Route: 065
     Dates: start: 201305

REACTIONS (4)
  - Impaired healing [Not Recovered/Not Resolved]
  - Ulcer [Unknown]
  - Skin disorder [Unknown]
  - Erysipelas [Unknown]
